FAERS Safety Report 5586244-4 (Version None)
Quarter: 2007Q4

REPORT INFORMATION
  Report Type: 
  Country: None (occurrence: None)
  Receive Date: 20071205
  Receipt Date: 20061207
  Transmission Date: 20080405
  Serious: Yes (Other)
  Sender: FDA-Public Use
  Company Number: HQWYE641305JAN07

PATIENT
  Sex: Female

DRUGS (4)
  1. EFFEXOR XR [Suspect]
     Indication: ANXIETY
     Dosage: 225 MG 1X PER 1 DAY ; TAPERED OFF
     Dates: start: 20050801, end: 20050101
  2. EFFEXOR XR [Suspect]
     Indication: ANXIETY
     Dosage: 225 MG 1X PER 1 DAY ; TAPERED OFF
     Dates: end: 20050801
  3. ZOLOFT [Suspect]
     Dates: start: 20060127
  4. DEXATRIM (CAFFEINE/PHENYLPROPANOLAMINE HYDROCHLORIDE) [Concomitant]

REACTIONS (5)
  - DRUG EXPOSURE DURING PREGNANCY [None]
  - FOCAL SEGMENTAL GLOMERULOSCLEROSIS [None]
  - HEADACHE [None]
  - HYPERTENSION [None]
  - RENAL IMPAIRMENT [None]
